FAERS Safety Report 5510753-7 (Version None)
Quarter: 2007Q4

REPORT INFORMATION
  Report Type: 
  Country: None (occurrence: None)
  Receive Date: 20071108
  Receipt Date: 20071105
  Transmission Date: 20080405
  Serious: Yes (Hospitalization)
  Sender: FDA-Public Use
  Company Number: B0491049A

PATIENT
  Age: 50 Year
  Sex: Male

DRUGS (2)
  1. AMOXICILLIN [Suspect]
     Indication: POST PROCEDURAL INFECTION
     Dosage: 250MG PER DAY
     Route: 048
     Dates: start: 20070904, end: 20070904
  2. FLOMAX [Concomitant]
     Dates: start: 20070831

REACTIONS (6)
  - CELLULITIS [None]
  - DIARRHOEA [None]
  - FEELING ABNORMAL [None]
  - FREQUENT BOWEL MOVEMENTS [None]
  - LIP SWELLING [None]
  - PAIN [None]
